FAERS Safety Report 20189440 (Version 2)
Quarter: 2021Q4

REPORT INFORMATION
  Report Type: Spontaneous
  Country: US (occurrence: US)
  Receive Date: 20211215
  Receipt Date: 20211224
  Transmission Date: 20220303
  Serious: Yes (Other)
  Sender: FDA-Public Use
  Company Number: US-TEVA-2021-US-1989261

PATIENT
  Age: 18 Month
  Sex: Male

DRUGS (8)
  1. DEXAMETHASONE [Suspect]
     Active Substance: DEXAMETHASONE
     Indication: Histiocytic sarcoma
     Route: 065
  2. DEXAMETHASONE [Suspect]
     Active Substance: DEXAMETHASONE
     Indication: BRAF gene mutation
  3. CLOFARABINE [Suspect]
     Active Substance: CLOFARABINE
     Indication: Histiocytic sarcoma
     Route: 065
  4. CLOFARABINE [Suspect]
     Active Substance: CLOFARABINE
     Indication: BRAF gene mutation
  5. TRAMETINIB [Suspect]
     Active Substance: TRAMETINIB
     Indication: Histiocytic sarcoma
     Route: 065
  6. TRAMETINIB [Suspect]
     Active Substance: TRAMETINIB
     Indication: BRAF gene mutation
  7. DABRAFENIB [Suspect]
     Active Substance: DABRAFENIB
     Indication: Histiocytic sarcoma
     Route: 065
  8. DABRAFENIB [Suspect]
     Active Substance: DABRAFENIB
     Indication: BRAF gene mutation

REACTIONS (3)
  - Treatment failure [Unknown]
  - Drug resistance [Unknown]
  - Off label use [Unknown]
